FAERS Safety Report 10344186 (Version 2)
Quarter: 2014Q4

REPORT INFORMATION
  Report Type: Not Available
  Country: DE (occurrence: DE)
  Receive Date: 20140728
  Receipt Date: 20141007
  Transmission Date: 20150528
  Serious: Yes (Other)
  Sender: FDA-Public Use
  Company Number: DE-BEH-2014043981

PATIENT
  Age: 29 Year
  Sex: Male

DRUGS (10)
  1. PRIVIGEN [Suspect]
     Active Substance: HUMAN IMMUNOGLOBULIN G
     Dosage: 3X10MG DURING 5 CONSECUTIVE DAYS 12 TIMES
     Route: 042
     Dates: start: 20140626, end: 20140630
  2. NUTRIFLEX [Concomitant]
     Active Substance: AMINO ACIDS\CARBOHYDRATES\ELECTROLYTES NOS
     Route: 042
  3. PRIVIGEN [Suspect]
     Active Substance: HUMAN IMMUNOGLOBULIN G
     Dosage: 4337100089 ONE TIME; 3X10MG DURING  5 CONSECUTIVE DAYS
     Route: 042
     Dates: start: 20140626, end: 20140630
  4. MERONEM [Concomitant]
     Active Substance: MEROPENEM
     Route: 042
  5. CERNEVIT [Concomitant]
     Active Substance: VITAMINS
     Route: 042
  6. PRIVIGEN [Suspect]
     Active Substance: HUMAN IMMUNOGLOBULIN G
     Indication: GUILLAIN-BARRE SYNDROME
     Dosage: 4337100073 2 TIMES; 3X10MG  DURING 5 CONSECUTIVE DAYS
     Route: 042
     Dates: start: 20140626, end: 20140630
  7. PASPERTIN 20 MG [Concomitant]
     Route: 042
  8. PANTOZOL 40 MG [Concomitant]
  9. SOLUTIONS FOR PARENTERAL NUTRITION [Concomitant]
     Active Substance: AMINO ACIDS\DEXTROSE\ELECTROLYTES NOS
  10. MONO EMBOLEX 3000IE [Concomitant]
     Dosage: 3000 IE
     Route: 058

REACTIONS (4)
  - Autoimmune haemolytic anaemia [Recovered/Resolved]
  - General physical health deterioration [Recovered/Resolved]
  - Asthenia [Recovered/Resolved]
  - Vomiting [Recovered/Resolved]

NARRATIVE: CASE EVENT DATE: 20140704
